FAERS Safety Report 23124723 (Version 3)
Quarter: 2024Q4

REPORT INFORMATION
  Report Type: Spontaneous
  Country: US (occurrence: US)
  Receive Date: 20231030
  Receipt Date: 20241219
  Transmission Date: 20250114
  Serious: Yes (Hospitalization)
  Sender: BAYER HEALTHCARE PHARMACEUTICALS INC.
  Company Number: US-BAYER-2023A152423

PATIENT
  Age: 22 Year
  Sex: Male

DRUGS (1)
  1. JIVI [Suspect]
     Active Substance: DAMOCTOCOG ALFA PEGOL
     Dosage: JIVI 500IU/3000IU: INFUSE~ 1000/ 3000 UNITS PRN
     Route: 042
     Dates: start: 202310

REACTIONS (1)
  - Joint effusion [None]
